FAERS Safety Report 13123382 (Version 1)
Quarter: 2017Q1

REPORT INFORMATION
  Report Type: Spontaneous
  Country: US (occurrence: US)
  Receive Date: 20170117
  Receipt Date: 20170117
  Transmission Date: 20170428
  Serious: No
  Sender: FDA-Public Use
  Company Number: US-ALLERGAN-1658084US

PATIENT
  Age: 28 Year
  Sex: Female
  Weight: 99.32 kg

DRUGS (2)
  1. DALVANCE [Suspect]
     Active Substance: DALBAVANCIN
     Indication: WOUND
     Dosage: 1000 MG, SINGLE
     Route: 042
     Dates: start: 20160509, end: 20160524
  2. DALVANCE [Suspect]
     Active Substance: DALBAVANCIN
     Indication: SKIN INFECTION
     Dosage: 500 MG, SINGLE
     Route: 042
     Dates: start: 20160516, end: 20160524

REACTIONS (3)
  - Rash [Recovered/Resolved]
  - Urticaria [Recovered/Resolved]
  - Pruritus [Recovered/Resolved]

NARRATIVE: CASE EVENT DATE: 20160519
